FAERS Safety Report 10101468 (Version 1)
Quarter: 2014Q2

REPORT INFORMATION
  Report Type: Spontaneous
  Country: FR (occurrence: None)
  Receive Date: 20140422
  Receipt Date: 20140422
  Transmission Date: 20141212
  Serious: Yes (Hospitalization)
  Sender: FDA-Public Use
  Company Number: AUR-APL-2014-04750

PATIENT
  Age: 74 Year
  Sex: Female

DRUGS (12)
  1. METFORMIN (METFORMIN) [Suspect]
     Indication: PRODUCT USED FOR UNKNOWN INDICATION
     Dosage: 1000 MG (500 MG, 2 IN 1 D), ORAL
     Route: 048
     Dates: end: 20140209
  2. ZYVOXID [Suspect]
     Indication: DEVICE RELATED INFECTION
     Dosage: 2 DOSAGE FORMS (1 DOSAGE FORMS, 2 IN 1 D), ORAL
     Route: 048
     Dates: start: 20140111, end: 20140209
  3. ESIDREX (HYDROCHLOROTHIAZIDE) [Concomitant]
  4. EUPANTOL (PANTOPRAZOLE SODIUM SESQUIHYDRATE) [Concomitant]
  5. IMIOVANE (ZOPICLONE) [Concomitant]
  6. JANUVIA (SITAGLIPTIN PHOSPHATE) [Concomitant]
  7. KARDEGIC (ACETYLSALICYLATE LYSINE) [Concomitant]
  8. LANTUS (INSULIN GLARGINE) [Concomitant]
  9. LOXEN (NICARDIPINE HYDROCHLORIDE) [Concomitant]
  10. PAROXETINE (PAROXETINE) [Concomitant]
  11. PERINDOPRIL (PERINDOPRIL) [Concomitant]
  12. TAHOR (ATORVASTATIN CALCIUM) [Concomitant]

REACTIONS (10)
  - Encephalopathy [None]
  - Metabolic acidosis [None]
  - Hepatitis acute [None]
  - Hepatocellular injury [None]
  - Lactic acidosis [None]
  - Cholestasis [None]
  - Vomiting [None]
  - Hypothermia [None]
  - Tachypnoea [None]
  - Hepatocellular injury [None]
